FAERS Safety Report 7081302-X (Version None)
Quarter: 2010Q4

REPORT INFORMATION
  Report Type: 
  Country: None (occurrence: None)
  Receive Date: 20101102
  Receipt Date: 20101102
  Transmission Date: 20110411
  Serious: Yes (Hospitalization)
  Sender: FDA-Public Use
  Company Number: None

PATIENT
  Sex: Female
  Weight: 103.3 kg

DRUGS (6)
  1. PEG-L- ASPARAGINASE (PEGASPARGASE, ONCOSPAR) [Suspect]
     Dosage: 5550 IU
     Dates: end: 20101004
  2. VINCRISTINE SULFATE [Suspect]
     Dosage: 4 MG
     Dates: end: 20101011
  3. CYCLOPHOSPHAMIDE [Suspect]
     Dosage: 2200 MG
     Dates: end: 20100920
  4. CYTARABINE [Suspect]
     Dosage: 1320 MG
     Dates: end: 20100930
  5. MERCAPTOPURINE [Suspect]
     Dosage: 1825 MG
     Dates: end: 20101003
  6. METHOTREXATE [Suspect]
     Dosage: 60 MG
     Dates: end: 20101011

REACTIONS (8)
  - BACK PAIN [None]
  - BLOOD CHOLESTEROL INCREASED [None]
  - BLOOD TRIGLYCERIDES INCREASED [None]
  - DIZZINESS [None]
  - HEADACHE [None]
  - NAUSEA [None]
  - PYREXIA [None]
  - VOMITING [None]
